FAERS Safety Report 14263529 (Version 4)
Quarter: 2018Q2

REPORT INFORMATION
  Report Type: Spontaneous
  Country: US (occurrence: US)
  Receive Date: 20171208
  Receipt Date: 20180405
  Transmission Date: 20180711
  Serious: Yes (Hospitalization, Other)
  Sender: FDA-Public Use
  Company Number: US-009507513-1712USA001556

PATIENT
  Sex: Female
  Weight: 120.18 kg

DRUGS (1)
  1. NUVARING [Suspect]
     Active Substance: ETHINYL ESTRADIOL\ETONOGESTREL
     Indication: CONTRACEPTION
     Dosage: 1 DF, UNK
     Route: 067
     Dates: start: 2009, end: 20151215

REACTIONS (20)
  - Acute respiratory failure [Recovered/Resolved]
  - Anxiety [Unknown]
  - Migraine [Unknown]
  - Deep vein thrombosis [Recovered/Resolved]
  - Gastrooesophageal reflux disease [Unknown]
  - Malaise [Unknown]
  - Menorrhagia [Unknown]
  - Rash [Not Recovered/Not Resolved]
  - Seasonal allergy [Unknown]
  - Hypokalaemia [Unknown]
  - Contrast media allergy [Unknown]
  - Syncope [Recovered/Resolved]
  - Infusion site haemorrhage [Recovered/Resolved]
  - Pruritus allergic [Unknown]
  - Pulmonary embolism [Recovered/Resolved]
  - Hyperglycaemia [Unknown]
  - Headache [Unknown]
  - Diabetes mellitus [Unknown]
  - Meniscus injury [Recovered/Resolved]
  - Meniscus injury [Unknown]

NARRATIVE: CASE EVENT DATE: 201512
